FAERS Safety Report 5954469-1 (Version None)
Quarter: 2008Q4

REPORT INFORMATION
  Report Type: 
  Country: None (occurrence: None)
  Receive Date: 20081113
  Receipt Date: 20081113
  Transmission Date: 20090506
  Serious: Yes (Hospitalization)
  Sender: FDA-Public Use
  Company Number: None

PATIENT
  Sex: Female
  Weight: 98.8 kg

DRUGS (6)
  1. TAXOL [Suspect]
     Dosage: 325 MG
     Dates: start: 20081103, end: 20081103
  2. CARBOPLATIN [Suspect]
     Dosage: 0 MG
     Dates: end: 20081103
  3. COUMADIN [Concomitant]
  4. HYDROCHLOROTHIAZIDE [Concomitant]
  5. LOVENOX [Concomitant]
  6. METOPROLOL TARTRATE [Concomitant]

REACTIONS (4)
  - BODY TEMPERATURE DECREASED [None]
  - CHEST DISCOMFORT [None]
  - CHILLS [None]
  - DYSPNOEA [None]
